FAERS Safety Report 11150745 (Version 2)
Quarter: 2015Q3

REPORT INFORMATION
  Report Type: Spontaneous
  Country: US (occurrence: US)
  Receive Date: 20150601
  Receipt Date: 20150701
  Transmission Date: 20151125
  Serious: No
  Sender: FDA-Public Use
  Company Number: US-ASTRAZENECA-2015SE47225

PATIENT
  Sex: Female

DRUGS (1)
  1. LYNPARZA [Suspect]
     Active Substance: OLAPARIB
     Indication: OVARIAN CANCER
     Route: 048

REACTIONS (10)
  - Dysphonia [Unknown]
  - Muscular weakness [Unknown]
  - Fatigue [Unknown]
  - Emotional disorder [Unknown]
  - Paraesthesia [Unknown]
  - Incontinence [Unknown]
  - Decreased appetite [Unknown]
  - Muscle spasms [Unknown]
  - Cough [Unknown]
  - Diarrhoea [Unknown]
